FAERS Safety Report 9013750 (Version 1)
Quarter: 2013Q1

REPORT INFORMATION
  Report Type: Spontaneous
  Country: US (occurrence: None)
  Receive Date: 20130108
  Receipt Date: 20130108
  Transmission Date: 20140127
  Serious: No
  Sender: FDA-Public Use
  Company Number: None

PATIENT
  Age: 69 Year
  Sex: Female

DRUGS (1)
  1. ORENCIA [Suspect]
     Dosage: 125MG PREFILLED SYRINGE

REACTIONS (7)
  - Pain in extremity [None]
  - Local swelling [None]
  - Abasia [None]
  - Constipation [None]
  - Dysuria [None]
  - Abdominal pain [None]
  - Abdominal distension [None]
